FAERS Safety Report 20797443 (Version 3)
Quarter: 2022Q2

REPORT INFORMATION
  Report Type: Spontaneous
  Country: US (occurrence: US)
  Receive Date: 20220506
  Receipt Date: 20220512
  Transmission Date: 20220721
  Serious: No
  Sender: FDA-Public Use
  Company Number: US-NOVARTISTESTPH-NVSC2022US104250

PATIENT
  Sex: Female

DRUGS (2)
  1. ESTRADIOL [Suspect]
     Active Substance: ESTRADIOL
     Indication: Menopause
     Dosage: 0.05 MG
     Route: 062
     Dates: start: 2020, end: 202203
  2. ESTRADIOL [Suspect]
     Active Substance: ESTRADIOL
     Dosage: 0.375 MG
     Route: 062

REACTIONS (2)
  - Vaginal haemorrhage [Unknown]
  - Device issue [Unknown]
